FAERS Safety Report 17829436 (Version 1)
Quarter: 2020Q2

REPORT INFORMATION
  Report Type: Spontaneous
  Country: US (occurrence: US)
  Receive Date: 20200527
  Receipt Date: 20200527
  Transmission Date: 20200714
  Serious: No
  Sender: FDA-Public Use
  Company Number: US-EVOLUS, INC.-2020EV000215

PATIENT
  Age: 54 Year
  Sex: Female
  Weight: 56.75 kg

DRUGS (3)
  1. JEUVEAU [Suspect]
     Active Substance: PRABOTULINUMTOXINA-XVFS
     Indication: SKIN WRINKLING
  2. JEUVEAU [Suspect]
     Active Substance: PRABOTULINUMTOXINA-XVFS
     Indication: SKIN WRINKLING
  3. TEMAZEPAM. [Concomitant]
     Active Substance: TEMAZEPAM
     Indication: INSOMNIA
     Route: 048

REACTIONS (11)
  - Dizziness [Unknown]
  - Lacrimation increased [Unknown]
  - Hypoaesthesia oral [Unknown]
  - Off label use [Recovered/Resolved]
  - Eye pain [Unknown]
  - Injection site pain [Recovered/Resolved]
  - Vision blurred [Unknown]
  - Muscular weakness [Not Recovered/Not Resolved]
  - Eye swelling [Unknown]
  - Headache [Unknown]
  - Injection site swelling [Unknown]

NARRATIVE: CASE EVENT DATE: 20200131
